FAERS Safety Report 9386628 (Version 1)
Quarter: 2013Q3

REPORT INFORMATION
  Report Type: Spontaneous
  Country: DK (occurrence: DK)
  Receive Date: 20130708
  Receipt Date: 20130708
  Transmission Date: 20140515
  Serious: Yes (Hospitalization, Other)
  Sender: FDA-Public Use
  Company Number: PHHY2013DK070292

PATIENT
  Age: 39 Year
  Sex: Female

DRUGS (2)
  1. ZOMETA [Suspect]
     Indication: METASTASES TO BONE
     Dosage: 4 MG/100ML
     Route: 042
     Dates: end: 201206
  2. BONDRONAT [Suspect]
     Indication: METASTASES TO BONE
     Dosage: UNK UKN, UNK

REACTIONS (1)
  - Osteonecrosis of jaw [Recovered/Resolved with Sequelae]
